FAERS Safety Report 8515396-9 (Version None)
Quarter: 2012Q3

REPORT INFORMATION
  Report Type: 
  Country: None (occurrence: None)
  Receive Date: 20120717
  Receipt Date: 20120705
  Transmission Date: 20120928
  Serious: Yes (Hospitalization)
  Sender: FDA-Public Use
  Company Number: US-ELI_LILLY_AND_COMPANY-US201202001596

PATIENT
  Sex: Female

DRUGS (1)
  1. FORTEO [Suspect]
     Indication: OSTEOPOROSIS
     Dosage: 20 UG, QD
     Dates: start: 20120202

REACTIONS (8)
  - TOOTH EXTRACTION [None]
  - GASTROINTESTINAL DISORDER [None]
  - SEPSIS [None]
  - HEADACHE [None]
  - POST PROCEDURAL HAEMORRHAGE [None]
  - ACIDOSIS [None]
  - BIOPSY KIDNEY [None]
  - TOOTH LOSS [None]
